FAERS Safety Report 11802757 (Version 1)
Quarter: 2015Q4

REPORT INFORMATION
  Report Type: Spontaneous
  Country: US (occurrence: US)
  Receive Date: 20151204
  Receipt Date: 20151204
  Transmission Date: 20160305
  Serious: No
  Sender: FDA-Public Use
  Company Number: US-BEH-2014045950

PATIENT
  Sex: Female
  Weight: 70 kg

DRUGS (30)
  1. KLONOPIN [Concomitant]
     Active Substance: CLONAZEPAM
  2. NORVASC [Concomitant]
     Active Substance: AMLODIPINE BESYLATE
  3. MIRALAX [Concomitant]
     Active Substance: POLYETHYLENE GLYCOL 3350
  4. PHENERGAN [Concomitant]
     Active Substance: PROMETHAZINE HYDROCHLORIDE
  5. BERINERT [Suspect]
     Active Substance: HUMAN C1-ESTERASE INHIBITOR
     Indication: HEREDITARY ANGIOEDEMA
     Route: 042
  6. HEPARIN [Concomitant]
     Active Substance: HEPARIN SODIUM
  7. ZOFRAN [Concomitant]
     Active Substance: ONDANSETRON HYDROCHLORIDE
  8. CELEXA [Concomitant]
     Active Substance: CITALOPRAM HYDROBROMIDE
  9. MIRAPEX [Concomitant]
     Active Substance: PRAMIPEXOLE DIHYDROCHLORIDE
  10. HYDROCORTISONE. [Concomitant]
     Active Substance: HYDROCORTISONE
  11. PYRIDIUM [Concomitant]
     Active Substance: PHENAZOPYRIDINE
  12. HYDROCHLOROTHIAZIDE. [Concomitant]
     Active Substance: HYDROCHLOROTHIAZIDE
  13. ZYRTEC [Concomitant]
     Active Substance: CETIRIZINE HYDROCHLORIDE
  14. VITAMIN D [Concomitant]
     Active Substance: CHOLECALCIFEROL
  15. BERINERT [Suspect]
     Active Substance: HUMAN C1-ESTERASE INHIBITOR
     Indication: COMPLEMENT FACTOR ABNORMAL
     Route: 042
  16. SODIUM CHLORIDE. [Concomitant]
     Active Substance: SODIUM CHLORIDE
  17. FERROUS SULFATE [Concomitant]
     Active Substance: FERROUS SULFATE\FERROUS SULFATE, DRIED
  18. TRAZODONE [Concomitant]
     Active Substance: TRAZODONE HYDROCHLORIDE
  19. DANAZOL. [Concomitant]
     Active Substance: DANAZOL
  20. MULTIVITAMIN [Concomitant]
     Active Substance: VITAMINS
  21. SOMA [Concomitant]
     Active Substance: CARISOPRODOL
  22. OXYCODONE [Concomitant]
     Active Substance: OXYCODONE
  23. VITAMIN B12 [Concomitant]
     Active Substance: CYANOCOBALAMIN
  24. CALCIUM 500 + D [Concomitant]
     Active Substance: CALCIUM\VITAMIN D
  25. OXYCONTIN [Concomitant]
     Active Substance: OXYCODONE HYDROCHLORIDE
  26. MAGNESIUM [Concomitant]
     Active Substance: MAGNESIUM
  27. BERINERT [Suspect]
     Active Substance: HUMAN C1-ESTERASE INHIBITOR
     Indication: OSTEOPOROSIS
     Route: 042
  28. EPIPEN [Concomitant]
     Active Substance: EPINEPHRINE
  29. METHADONE [Concomitant]
     Active Substance: METHADONE HYDROCHLORIDE
  30. ATENOLOL. [Concomitant]
     Active Substance: ATENOLOL

REACTIONS (1)
  - Pyrexia [Unknown]
